FAERS Safety Report 14317295 (Version 1)
Quarter: 2017Q4

REPORT INFORMATION
  Report Type: Spontaneous
  Country: DE (occurrence: DE)
  Receive Date: 20171222
  Receipt Date: 20171222
  Transmission Date: 20180321
  Serious: Yes (Hospitalization)
  Sender: FDA-Public Use
  Company Number: PHHY2017DE189864

PATIENT
  Age: 43 Year
  Sex: Female

DRUGS (7)
  1. PACLITAXEL. [Suspect]
     Active Substance: PACLITAXEL
     Indication: BREAST CANCER
     Dosage: 80 MG/M2, QW 12 CYCLES
     Route: 042
     Dates: start: 201706
  2. TARDYFERON B(9) [Concomitant]
     Active Substance: FERROUS SULFATE\FOLIC ACID
     Indication: HAEMOGLOBIN DECREASED
     Route: 065
  3. PERJETA [Suspect]
     Active Substance: PERTUZUMAB
     Indication: BREAST CANCER
     Dosage: DAILY DOSE: 420 MG, QW
     Route: 042
     Dates: start: 201706
  4. ONDANSETRON [Concomitant]
     Active Substance: ONDANSETRON
     Indication: PRODUCT USED FOR UNKNOWN INDICATION
     Dosage: 8 MG, UNK
     Route: 065
  5. GRIPPOSTAD [Concomitant]
     Indication: RESPIRATORY TRACT INFECTION
     Route: 065
  6. HERCEPTIN [Suspect]
     Active Substance: TRASTUZUMAB
     Indication: BREAST CANCER
     Dosage: DAILY DOSE:6 MG/KG, QW
     Route: 042
     Dates: start: 201706
  7. DEXAMETHASONE. [Concomitant]
     Active Substance: DEXAMETHASONE
     Indication: PREMEDICATION
     Dosage: 8 MG, UNK
     Route: 065

REACTIONS (5)
  - Acute kidney injury [Recovered/Resolved]
  - Respiratory tract infection [Unknown]
  - Ill-defined disorder [Unknown]
  - Mental disorder [Unknown]
  - Diarrhoea [Recovered/Resolved]

NARRATIVE: CASE EVENT DATE: 20170724
